FAERS Safety Report 17740260 (Version 1)
Quarter: 2020Q2

REPORT INFORMATION
  Report Type: Spontaneous
  Country: US (occurrence: US)
  Receive Date: 20200504
  Receipt Date: 20200504
  Transmission Date: 20200714
  Serious: No
  Sender: FDA-Public Use
  Company Number: US-PFIZER INC-2020175801

PATIENT
  Age: 56 Year
  Sex: Female

DRUGS (1)
  1. VIZIMPRO [Suspect]
     Active Substance: DACOMITINIB
     Dosage: UNK
     Dates: end: 20200429

REACTIONS (4)
  - Dyspnoea [Unknown]
  - Productive cough [Unknown]
  - Neoplasm progression [Unknown]
  - Diarrhoea [Unknown]
